FAERS Safety Report 6708928-4 (Version None)
Quarter: 2010Q2

REPORT INFORMATION
  Report Type: 
  Country: None (occurrence: None)
  Receive Date: 20100503
  Receipt Date: 20100503
  Transmission Date: 20101027
  Serious: Yes (Other)
  Sender: FDA-Public Use
  Company Number: None

PATIENT
  Age: 34 Year
  Sex: Female
  Weight: 53.978 kg

DRUGS (1)
  1. ADDERALL 10 [Suspect]
     Indication: ATTENTION DEFICIT/HYPERACTIVITY DISORDER
     Dosage: 20 MG QAM AND 12N
     Dates: start: 20100309, end: 20100409

REACTIONS (3)
  - FEELING ABNORMAL [None]
  - MIGRAINE [None]
  - PRODUCT SUBSTITUTION ISSUE [None]
